FAERS Safety Report 8430801-4 (Version None)
Quarter: 2012Q2

REPORT INFORMATION
  Report Type: 
  Country: None (occurrence: None)
  Receive Date: 20120612
  Receipt Date: 20120530
  Transmission Date: 20120825
  Serious: Yes (Other)
  Sender: FDA-Public Use
  Company Number: US-ROCHE-784269

PATIENT
  Sex: Male
  Weight: 70.37 kg

DRUGS (5)
  1. PREDNISONE [Concomitant]
  2. SOTRET [Concomitant]
  3. ACCUTANE [Suspect]
     Route: 065
     Dates: start: 20020703, end: 20030709
  4. ACCUTANE [Suspect]
     Route: 065
     Dates: start: 20070301, end: 20070401
  5. ACCUTANE [Suspect]
     Indication: PRODUCT USED FOR UNKNOWN INDICATION
     Route: 065
     Dates: start: 20020401, end: 20021201

REACTIONS (6)
  - INFLAMMATORY BOWEL DISEASE [None]
  - ANASTOMOTIC STENOSIS [None]
  - IRRITABLE BOWEL SYNDROME [None]
  - CROHN'S DISEASE [None]
  - STRESS [None]
  - SMALL INTESTINAL OBSTRUCTION [None]
